FAERS Safety Report 14497582 (Version 1)
Quarter: 2018Q1

REPORT INFORMATION
  Report Type: Spontaneous
  Country: GB (occurrence: GB)
  Receive Date: 20180207
  Receipt Date: 20180207
  Transmission Date: 20180509
  Serious: Yes (Other)
  Sender: FDA-Public Use
  Company Number: PHHY2017GB200309

PATIENT

DRUGS (1)
  1. GABAPENTIN. [Suspect]
     Active Substance: GABAPENTIN
     Indication: PAIN
     Route: 065

REACTIONS (4)
  - Feeling abnormal [Recovered/Resolved]
  - Drug ineffective [Unknown]
  - Weight increased [Unknown]
  - Mental impairment [Recovered/Resolved]
